FAERS Safety Report 9499876 (Version 1)
Quarter: 2013Q3

REPORT INFORMATION
  Report Type: Spontaneous
  Country: US (occurrence: US)
  Receive Date: 20130905
  Receipt Date: 20130905
  Transmission Date: 20140515
  Serious: Yes (Other)
  Sender: FDA-Public Use
  Company Number: US-ROXANE LABORATORIES, INC.-2013-RO-01477RO

PATIENT
  Sex: 0

DRUGS (2)
  1. DIGOXIN [Suspect]
  2. METOPROLOL [Suspect]

REACTIONS (2)
  - Fatigue [Unknown]
  - Heart rate decreased [Unknown]
